FAERS Safety Report 6901238-1 (Version None)
Quarter: 2010Q3

REPORT INFORMATION
  Report Type: 
  Country: None (occurrence: None)
  Receive Date: 20100803
  Receipt Date: 20100716
  Transmission Date: 20110219
  Serious: No
  Sender: FDA-Public Use
  Company Number: US-BAYER-201018167BCC

PATIENT
  Age: 34 Year
  Sex: Female
  Weight: 93 kg

DRUGS (4)
  1. ALEVE (CAPLET) [Suspect]
     Indication: HEADACHE
     Dosage: UNIT DOSE: 220 MG
     Route: 048
     Dates: start: 20100712
  2. BIRTH CONTROL PILLS [Concomitant]
     Route: 065
  3. CELEXA [Concomitant]
     Route: 065
  4. BLOOD PRESSURE MEDICATION [Concomitant]
     Route: 065

REACTIONS (1)
  - DYSPEPSIA [None]
